FAERS Safety Report 7048844-4 (Version None)
Quarter: 2010Q4

REPORT INFORMATION
  Report Type: 
  Country: None (occurrence: None)
  Receive Date: 20101018
  Receipt Date: 20101007
  Transmission Date: 20110411
  Serious: Yes (Other)
  Sender: FDA-Public Use
  Company Number: BR-ASTRAZENECA-2010SE47688

PATIENT
  Sex: Female
  Weight: 60 kg

DRUGS (1)
  1. CRESTOR [Suspect]
     Indication: HYPERCHOLESTEROLAEMIA
     Route: 048
     Dates: end: 20100901

REACTIONS (5)
  - DRUG DOSE OMISSION [None]
  - DRY MOUTH [None]
  - GINGIVAL BLEEDING [None]
  - NASOPHARYNGITIS [None]
  - PAIN IN EXTREMITY [None]
